FAERS Safety Report 10023754 (Version 2)
Quarter: 2014Q2

REPORT INFORMATION
  Report Type: Spontaneous
  Country: US (occurrence: US)
  Receive Date: 20140320
  Receipt Date: 20140619
  Transmission Date: 20141212
  Serious: Yes (Other)
  Sender: FDA-Public Use
  Company Number: US-BAYER-2014-041669

PATIENT
  Age: 28 Year
  Sex: Female
  Weight: 54.42 kg

DRUGS (13)
  1. YASMIN [Suspect]
     Dosage: UNK
     Dates: start: 200906, end: 201103
  2. PERCOCET [Concomitant]
     Indication: ARTHRALGIA
     Dosage: 5 MG/325 MG
     Route: 048
  3. MELOXICAM [Concomitant]
     Dosage: 7.5 MG, EVERY DAY
     Route: 048
  4. METHOCARBAMOL [Concomitant]
     Indication: MUSCLE SPASMS
     Dosage: 500 MG, PRN
     Route: 048
  5. PRILOSEC [Concomitant]
     Indication: GASTROOESOPHAGEAL REFLUX DISEASE
     Dosage: 20 MG, UNK
  6. PHENERGAN [Concomitant]
     Indication: GASTROENTERITIS
     Dosage: 25 MG, UNK
     Route: 048
  7. MOTRIN [Concomitant]
     Indication: PAIN
  8. NAPROXEN [Concomitant]
     Indication: ARTHRALGIA
     Dosage: 500 MG, BID
  9. TYLENOL [PARACETAMOL] [Concomitant]
     Indication: PAIN
  10. NYSTATIN W/TRIAMCINOLONE [NYSTATIN,TRIAMCINOLONE] [Concomitant]
     Indication: VULVOVAGINAL PRURITUS
     Dosage: 15 G, APPLY TO AFFECTED AREA AS DIRECTED
  11. MONTELUKAST SODIUM [Concomitant]
     Dosage: 10 MG, QD
     Route: 048
  12. FEXOFENADINE HYDROCHLORIDE [Concomitant]
     Dosage: 180 MG, UNK
     Route: 048
  13. OMEPRAZOLE [Concomitant]
     Indication: GASTROOESOPHAGEAL REFLUX DISEASE
     Dosage: 20 MG, UNK
     Route: 048

REACTIONS (7)
  - Deep vein thrombosis [Recovered/Resolved]
  - Injury [Recovered/Resolved]
  - Pain [None]
  - Emotional distress [None]
  - General physical health deterioration [Recovered/Resolved]
  - Anxiety [Recovered/Resolved]
  - Pain [Recovered/Resolved]
